FAERS Safety Report 25760724 (Version 1)
Quarter: 2025Q3

REPORT INFORMATION
  Report Type: Spontaneous
  Country: JP (occurrence: JP)
  Receive Date: 20250904
  Receipt Date: 20250904
  Transmission Date: 20251021
  Serious: Yes (Hospitalization, Other)
  Sender: ALEXION PHARMACEUTICALS
  Company Number: JP-AstraZeneca-CH-00939699A

PATIENT
  Sex: Male

DRUGS (2)
  1. ULTOMIRIS [Suspect]
     Active Substance: RAVULIZUMAB-CWVZ
     Indication: Paroxysmal nocturnal haemoglobinuria
     Dosage: 3000 MILLIGRAM, Q8W
     Dates: start: 20250110
  2. VOYDEYA [Suspect]
     Active Substance: DANICOPAN
     Indication: Paroxysmal nocturnal haemoglobinuria
     Dosage: 450 MILLIGRAM, TID
     Dates: start: 20250609

REACTIONS (1)
  - Haemolysis [Recovered/Resolved]

NARRATIVE: CASE EVENT DATE: 20250801
